FAERS Safety Report 16369564 (Version 1)
Quarter: 2019Q2

REPORT INFORMATION
  Report Type: Spontaneous
  Country: MA (occurrence: MA)
  Receive Date: 20190530
  Receipt Date: 20190530
  Transmission Date: 20190711
  Serious: Yes (Life-Threatening, Hospitalization)
  Sender: FDA-Public Use
  Company Number: MA-SUN PHARMACEUTICAL INDUSTRIES LTD-2019R1-208456

PATIENT
  Age: 17 Year
  Sex: Female

DRUGS (1)
  1. BACLOFEN. [Suspect]
     Active Substance: BACLOFEN
     Indication: PRODUCT USED FOR UNKNOWN INDICATION
     Dosage: 250 MILLIGRAM, UNK
     Route: 048

REACTIONS (5)
  - Toxicity to various agents [Unknown]
  - Coma [Recovered/Resolved]
  - Overdose [Unknown]
  - Mydriasis [Recovered/Resolved]
  - Hyporeflexia [Recovered/Resolved]
